FAERS Safety Report 19052960 (Version 3)
Quarter: 2021Q4

REPORT INFORMATION
  Report Type: Report from Study
  Country: AU (occurrence: AU)
  Receive Date: 20210324
  Receipt Date: 20211013
  Transmission Date: 20220303
  Serious: Yes (Other)
  Sender: FDA-Public Use
  Company Number: AU-TAKEDA-2021TUS017597

PATIENT
  Sex: Male

DRUGS (5)
  1. VEDOLIZUMAB [Suspect]
     Active Substance: VEDOLIZUMAB
     Indication: Colitis ulcerative
     Dosage: 300 MILLIGRAM
     Route: 042
  2. MESALAMINE [Suspect]
     Active Substance: MESALAMINE
     Indication: Colitis ulcerative
     Dosage: 4.8 GRAM
     Route: 065
  3. SALOFALK GR [Concomitant]
  4. ENEMA BALKAN [Concomitant]
     Dosage: UNK
  5. MERCAPTOPURINE [Concomitant]
     Active Substance: MERCAPTOPURINE
     Dosage: UNK

REACTIONS (8)
  - Colitis ulcerative [Unknown]
  - Steroid dependence [Unknown]
  - Rectal haemorrhage [Unknown]
  - Treatment noncompliance [Unknown]
  - Haemoglobin abnormal [Unknown]
  - Diarrhoea [Unknown]
  - Defaecation urgency [Unknown]
  - Off label use [Unknown]
